FAERS Safety Report 24690548 (Version 2)
Quarter: 2025Q1

REPORT INFORMATION
  Report Type: Report from Study
  Country: CA (occurrence: CA)
  Receive Date: 20241203
  Receipt Date: 20250205
  Transmission Date: 20250408
  Serious: No
  Sender: REGENERON
  Company Number: CA-BAYER-2024A170164

PATIENT
  Sex: Female

DRUGS (1)
  1. EYLEA [Suspect]
     Active Substance: AFLIBERCEPT
     Indication: Diabetic retinal oedema
     Dates: start: 20241021

REACTIONS (1)
  - Visual impairment [Unknown]
